FAERS Safety Report 10452187 (Version 2)
Quarter: 2014Q3

REPORT INFORMATION
  Report Type: Spontaneous
  Country: US (occurrence: US)
  Receive Date: 20140915
  Receipt Date: 20140915
  Transmission Date: 20150326
  Serious: No
  Sender: FDA-Public Use
  Company Number: US-MYLAN-2013S1020331

PATIENT
  Age: 29 Year
  Sex: Female

DRUGS (11)
  1. ISOSULFAN BLUE INJECTION [Suspect]
     Active Substance: ISOSULFAN BLUE
     Indication: DRUG THERAPY ENHANCEMENT
     Dosage: 50 MG,ONCE
     Dates: start: 20130905, end: 20130905
  2. ANCEF [Concomitant]
     Active Substance: CEFAZOLIN SODIUM
     Dosage: 2 MG,UNK
     Route: 042
  3. OFIRMEV [Concomitant]
     Active Substance: ACETAMINOPHEN
     Dosage: 1 G,UNK
     Route: 042
  4. SCOPALAMIN [Concomitant]
     Dosage: UNK
     Route: 062
  5. FENTANYL. [Concomitant]
     Active Substance: FENTANYL
     Dosage: 200 ?G,UNK
     Route: 042
  6. ROCURONIUM [Concomitant]
     Active Substance: ROCURONIUM BROMIDE
     Dosage: UNK
  7. ONDANSETRAN [Concomitant]
     Active Substance: ONDANSETRON HYDROCHLORIDE
     Dosage: 4 MG,UNK
     Route: 042
  8. MIDAZOLAM [Concomitant]
     Active Substance: MIDAZOLAM\MIDAZOLAM HYDROCHLORIDE
     Dosage: 1 MG,UNK
     Route: 042
  9. PROPOFOL. [Concomitant]
     Active Substance: PROPOFOL
     Dosage: 200 MG,UNK
     Route: 042
  10. LIDOCAINE. [Concomitant]
     Active Substance: LIDOCAINE
     Dosage: 1 %,UNK
  11. DEMEROL [Concomitant]
     Active Substance: MEPERIDINE HYDROCHLORIDE
     Dosage: 6.25 MG,UNK
     Route: 042

REACTIONS (2)
  - Wrong drug administered [Recovered/Resolved]
  - No adverse event [Recovered/Resolved]

NARRATIVE: CASE EVENT DATE: 20130905
